FAERS Safety Report 8606645-7 (Version None)
Quarter: 2012Q3

REPORT INFORMATION
  Report Type: 
  Country: None (occurrence: None)
  Receive Date: 20120820
  Receipt Date: 20120816
  Transmission Date: 20120928
  Serious: No
  Sender: FDA-Public Use
  Company Number: US-PFIZER INC-2012201801

PATIENT

DRUGS (1)
  1. CHANTIX [Suspect]

REACTIONS (1)
  - INSOMNIA [None]
